FAERS Safety Report 9505565 (Version 1)
Quarter: 2013Q1

REPORT INFORMATION
  Report Type: Spontaneous
  Country: US (occurrence: None)
  Receive Date: 20130220
  Receipt Date: 20130220
  Transmission Date: 20140127
  Serious: No
  Sender: FDA-Public Use
  Company Number: 1000039814

PATIENT
  Age: 42 Year
  Sex: Male

DRUGS (2)
  1. VIIBRYD (VILAZODONE HYDROCHLORIDE) (10 MILLIGRAMS, TABLETS) [Suspect]
     Indication: ANXIETY
     Route: 048
     Dates: start: 2012, end: 2012
  2. VIIBRYD (VILAZODONE HYDROCHLORIDE) (10 MILLIGRAMS, TABLETS) [Suspect]
     Indication: ANXIETY
     Route: 048
     Dates: start: 201209

REACTIONS (17)
  - Feeling abnormal [None]
  - Asthenia [None]
  - Nausea [None]
  - Fatigue [None]
  - Feeling jittery [None]
  - Tremor [None]
  - Weight decreased [None]
  - Abnormal dreams [None]
  - Abdominal distension [None]
  - Hyperhidrosis [None]
  - Panic attack [None]
  - Chest discomfort [None]
  - Nervousness [None]
  - Photopsia [None]
  - Insomnia [None]
  - Dizziness [None]
  - Anxiety [None]
